FAERS Safety Report 17020357 (Version 1)
Quarter: 2019Q4

REPORT INFORMATION
  Report Type: Spontaneous
  Country: US (occurrence: US)
  Receive Date: 20191005
  Receipt Date: 20191005
  Transmission Date: 20200122
  Serious: Yes (Hospitalization)
  Sender: FDA-Public Use
  Company Number: None

PATIENT
  Age: 48 Year
  Sex: Female
  Weight: 74 kg

DRUGS (6)
  1. DEXMETHASONE [Suspect]
     Active Substance: DEXAMETHASONE
     Dates: end: 20190828
  2. METHOTREXATE. [Suspect]
     Active Substance: METHOTREXATE
     Dates: end: 20190821
  3. CYTARABINE. [Suspect]
     Active Substance: CYTARABINE
     Dates: end: 20190808
  4. VINCRISTINE SULFATE. [Suspect]
     Active Substance: VINCRISTINE SULFATE
     Dates: end: 20190829
  5. DAUNORUBICIN [Suspect]
     Active Substance: DAUNORUBICIN
     Dates: end: 20190829
  6. ONCASPAR [Suspect]
     Active Substance: PEGASPARGASE
     Dosage: ?          OTHER DOSE:3675 UNIT;?

REACTIONS (5)
  - Pneumonia [None]
  - Bronchopulmonary aspergillosis [None]
  - Pneumonitis [None]
  - Alveolitis [None]
  - Lung opacity [None]

NARRATIVE: CASE EVENT DATE: 20190923
